FAERS Safety Report 10018370 (Version 3)
Quarter: 2014Q2

REPORT INFORMATION
  Report Type: Spontaneous
  Country: NL (occurrence: NL)
  Receive Date: 20140318
  Receipt Date: 20140418
  Transmission Date: 20141212
  Serious: No
  Sender: FDA-Public Use
  Company Number: NL-PFIZER INC-2014059540

PATIENT
  Sex: Male

DRUGS (1)
  1. TAZOCIN [Suspect]
     Dosage: 4.5 G, UNK

REACTIONS (2)
  - Extravasation [Unknown]
  - Injection site swelling [Unknown]
